FAERS Safety Report 6144436-X (Version None)
Quarter: 2009Q2

REPORT INFORMATION
  Report Type: 
  Country: None (occurrence: None)
  Receive Date: 20090406
  Receipt Date: 20090326
  Transmission Date: 20091009
  Serious: Yes (Other)
  Sender: FDA-Public Use
  Company Number: GB-ELI_LILLY_AND_COMPANY-GB200903006572

PATIENT
  Age: 62 Year
  Sex: Male

DRUGS (5)
  1. BYETTA [Suspect]
     Indication: DIABETES MELLITUS
     Dosage: 5 UG, UNKNOWN
     Route: 058
     Dates: start: 20090218, end: 20090221
  2. BISOPROLOL [Concomitant]
     Dosage: 30 MG, DAILY (1/D)
     Route: 048
  3. GLUCOPHAGE [Concomitant]
     Dosage: 1 G, 2/D
     Route: 048
  4. MIXTARD /00634701/ [Concomitant]
     Indication: HYPERGLYCAEMIA
     Dosage: UNK, UNKNOWN
     Route: 058
  5. SIMVASTATIN [Concomitant]
     Dosage: 40 MG, DAILY (1/D)
     Route: 048

REACTIONS (1)
  - CHEST PAIN [None]
